FAERS Safety Report 8826263 (Version 1)
Quarter: 2012Q4

REPORT INFORMATION
  Report Type: Report from Study
  Country: US (occurrence: US)
  Receive Date: 20121005
  Receipt Date: 20121005
  Transmission Date: 20130627
  Serious: Yes (Other)
  Sender: FDA-Public Use
  Company Number: US-JNJFOC-20120911527

PATIENT
  Sex: Female

DRUGS (6)
  1. REMICADE [Suspect]
     Indication: RHEUMATOID ARTHRITIS
     Route: 042
     Dates: start: 2012, end: 2012
  2. REMICADE [Suspect]
     Indication: PSORIATIC ARTHROPATHY
     Route: 042
     Dates: start: 2012, end: 2012
  3. REMICADE [Suspect]
     Indication: PSORIASIS
     Route: 042
     Dates: start: 2012, end: 2012
  4. METHOTREXATE [Concomitant]
     Indication: PSORIASIS
     Route: 058
     Dates: start: 2012
  5. METHOTREXATE [Concomitant]
     Indication: PSORIATIC ARTHROPATHY
     Route: 058
     Dates: start: 2012
  6. METHOTREXATE [Concomitant]
     Indication: RHEUMATOID ARTHRITIS
     Route: 058
     Dates: start: 2012

REACTIONS (6)
  - Convulsion [Recovered/Resolved]
  - Dyspnoea [Recovered/Resolved]
  - Infusion related reaction [Recovered/Resolved]
  - Pharyngeal oedema [Recovered/Resolved]
  - Incoherent [Recovered/Resolved]
  - Flushing [Recovered/Resolved]
